FAERS Safety Report 25553117 (Version 1)
Quarter: 2025Q3

REPORT INFORMATION
  Report Type: Spontaneous
  Country: JP (occurrence: JP)
  Receive Date: 20250715
  Receipt Date: 20250715
  Transmission Date: 20251021
  Serious: Yes (Life-Threatening, Other)
  Sender: ALEXION PHARMACEUTICALS
  Company Number: JP-ASTRAZENECA-202507JPN008319JP

PATIENT
  Age: 66 Year
  Sex: Male

DRUGS (3)
  1. IMFINZI [Suspect]
     Active Substance: DURVALUMAB
     Indication: Non-small cell lung cancer stage IV
     Route: 065
  2. CARBOPLATIN [Concomitant]
     Active Substance: CARBOPLATIN
     Indication: Non-small cell lung cancer stage IV
     Route: 065
  3. ETOPOSIDE [Concomitant]
     Active Substance: ETOPOSIDE
     Indication: Non-small cell lung cancer stage IV
     Route: 065

REACTIONS (3)
  - Haematotoxicity [Unknown]
  - Metastases to central nervous system [Unknown]
  - Malignant neoplasm progression [Unknown]
